FAERS Safety Report 4361532-8 (Version None)
Quarter: 2004Q2

REPORT INFORMATION
  Report Type: 
  Country: None (occurrence: None)
  Receive Date: 20040521
  Receipt Date: 20040317
  Transmission Date: 20050107
  Serious: No
  Sender: FDA-Public Use
  Company Number: US-GLAXOSMITHKLINE-A0503215A

PATIENT
  Age: 60 Year
  Sex: Female

DRUGS (3)
  1. ZYBAN [Suspect]
     Dosage: 150MG TWICE PER DAY
     Route: 048
     Dates: start: 20040227, end: 20040309
  2. NEURONTIN [Concomitant]
  3. ALBUTEROL [Concomitant]

REACTIONS (4)
  - NAUSEA [None]
  - RASH [None]
  - RASH ERYTHEMATOUS [None]
  - VOMITING [None]
